FAERS Safety Report 15614901 (Version 3)
Quarter: 2019Q1

REPORT INFORMATION
  Report Type: Spontaneous
  Country: US (occurrence: US)
  Receive Date: 20181114
  Receipt Date: 20190104
  Transmission Date: 20190417
  Serious: No
  Sender: FDA-Public Use
  Company Number: US-009507513-1811USA004587

PATIENT
  Age: 27 Year
  Sex: Female
  Weight: 47.17 kg

DRUGS (1)
  1. NEXPLANON [Suspect]
     Active Substance: ETONOGESTREL
     Dosage: 1 IMPLANT EVERY 3 YEARS
     Route: 059
     Dates: start: 20171011, end: 20181109

REACTIONS (5)
  - Product quality issue [Unknown]
  - Complication of device removal [Recovered/Resolved]
  - Device breakage [Recovered/Resolved]
  - Device deployment issue [Recovered/Resolved]
  - Complication of device removal [Unknown]

NARRATIVE: CASE EVENT DATE: 20171011
